FAERS Safety Report 5596538-4 (Version None)
Quarter: 2008Q1

REPORT INFORMATION
  Report Type: 
  Country: None (occurrence: None)
  Receive Date: 20080118
  Receipt Date: 20080107
  Transmission Date: 20080703
  Serious: Yes (Hospitalization)
  Sender: FDA-Public Use
  Company Number: US-GILEAD-2007-0014034

PATIENT
  Age: 72 Year
  Sex: Female

DRUGS (2)
  1. LETAIRIS [Suspect]
     Indication: PULMONARY HYPERTENSION
     Dates: start: 20071018
  2. LASIX [Concomitant]

REACTIONS (7)
  - CHEST DISCOMFORT [None]
  - CHEST PAIN [None]
  - DIARRHOEA [None]
  - DYSPNOEA [None]
  - ERYTHEMA [None]
  - EYE SWELLING [None]
  - OEDEMA PERIPHERAL [None]
